FAERS Safety Report 18268142 (Version 5)
Quarter: 2024Q2

REPORT INFORMATION
  Report Type: Spontaneous
  Country: US (occurrence: US)
  Receive Date: 20200915
  Receipt Date: 20240409
  Transmission Date: 20240716
  Serious: No
  Sender: FDA-Public Use
  Company Number: US-PFIZER INC-2020351859

PATIENT
  Age: 76 Year
  Sex: Female
  Weight: 57.61 kg

DRUGS (4)
  1. IBRANCE [Suspect]
     Active Substance: PALBOCICLIB
     Dosage: 125 MG
  2. IBRANCE [Suspect]
     Active Substance: PALBOCICLIB
     Dosage: 100 MG
  3. IBRANCE [Suspect]
     Active Substance: PALBOCICLIB
     Dosage: 125 MG
  4. LETROZOLE [Concomitant]
     Active Substance: LETROZOLE
     Dosage: UNK

REACTIONS (9)
  - Night sweats [Unknown]
  - Tumour marker increased [Unknown]
  - Carbohydrate antigen 27.29 increased [Unknown]
  - Pruritus [Unknown]
  - Lacrimation increased [Unknown]
  - Alopecia [Unknown]
  - Dry skin [Unknown]
  - Eyelid disorder [Unknown]
  - Skin lesion [Unknown]
